FAERS Safety Report 7780404-X (Version None)
Quarter: 2011Q3

REPORT INFORMATION
  Report Type: 
  Country: None (occurrence: None)
  Receive Date: 20110922
  Receipt Date: 20110915
  Transmission Date: 20111222
  Serious: Yes (Other)
  Sender: FDA-Public Use
  Company Number: CL-344-2011

PATIENT
  Sex: Male

DRUGS (3)
  1. AMITRIPTYLINE HCL [Concomitant]
  2. ZOPICLONE [Concomitant]
  3. METRONIDAZOLE [Suspect]
     Indication: DIVERTICULITIS
     Dosage: 400 MG TID ORAL
     Route: 048
     Dates: start: 20110820, end: 20110821

REACTIONS (3)
  - NEUROTOXICITY [None]
  - DIZZINESS [None]
  - PARAESTHESIA [None]
